FAERS Safety Report 18449857 (Version 3)
Quarter: 2020Q4

REPORT INFORMATION
  Report Type: Report from Study
  Country: BR (occurrence: BR)
  Receive Date: 20201030
  Receipt Date: 20201130
  Transmission Date: 20210114
  Serious: Yes (Life-Threatening, Other)
  Sender: FDA-Public Use
  Company Number: BR-GILEAD-2020-0490348

PATIENT
  Age: 61 Year
  Sex: Female
  Weight: 53 kg

DRUGS (22)
  1. PLACEBO [Suspect]
     Active Substance: UNSPECIFIED INGREDIENT
     Indication: COVID-19 PNEUMONIA
     Dosage: MOST RECENT DOSE OF BLINDED TOCILIZUMAB PRIOR TO SAE/AE ONSET: 09/AUG/2020 AT 09:42 HR
     Route: 042
     Dates: start: 20200808
  2. OSELTAMIVIR [Concomitant]
     Active Substance: OSELTAMIVIR
     Indication: COVID-19
  3. ENOXAPARIN [Concomitant]
     Active Substance: ENOXAPARIN
     Indication: THROMBOSIS PROPHYLAXIS
     Dosage: 40 MG
     Dates: start: 20200806
  4. SIMVASTATIN. [Concomitant]
     Active Substance: SIMVASTATIN
     Indication: DYSLIPIDAEMIA
     Dosage: 40 MG
     Dates: start: 2000
  5. CEFTRIAXONE. [Concomitant]
     Active Substance: CEFTRIAXONE
     Indication: ANTIBIOTIC PROPHYLAXIS
     Dates: start: 20200806
  6. DIPIRONE [Concomitant]
     Active Substance: METAMIZOLE SODIUM
     Indication: COVID-19
     Dosage: 1000 MG
     Dates: start: 20200806
  7. PRECEDEX [Concomitant]
     Active Substance: DEXMEDETOMIDINE HYDROCHLORIDE
     Indication: DEPRESSION
     Dosage: 100 UG
     Dates: start: 20200806
  8. INSULIN, REGULAR [Concomitant]
     Active Substance: INSULIN NOS
     Indication: ACUTE KIDNEY INJURY
     Dosage: 10 IU
     Dates: start: 20200813
  9. AZITHROMICIN [Concomitant]
     Active Substance: AZITHROMYCIN
     Indication: ANTIBIOTIC PROPHYLAXIS
     Dosage: 500 MG
     Dates: start: 20200806
  10. OSELTAMIVIR [Concomitant]
     Active Substance: OSELTAMIVIR
     Indication: INFLUENZA
     Dosage: 75 MG
     Dates: start: 20200806
  11. MIRTAZAPINE. [Concomitant]
     Active Substance: MIRTAZAPINE
     Indication: DEPRESSION
     Dates: start: 2016
  12. PLACEBO [Suspect]
     Active Substance: UNSPECIFIED INGREDIENT
     Dosage: UNK
     Route: 042
  13. DEXAMETHASONE. [Concomitant]
     Active Substance: DEXAMETHASONE
     Indication: COVID-19
     Dosage: 6 MG
     Dates: start: 20200806
  14. LOSARTAN. [Concomitant]
     Active Substance: LOSARTAN
     Indication: HYPERTENSION
     Dosage: 50 MG
     Dates: start: 2000
  15. ALENIA [BUDESONIDE;FORMOTEROL FUMARATE] [Concomitant]
     Active Substance: BUDESONIDE\FORMOTEROL FUMARATE
     Indication: ASTHMA
     Dates: start: 2017
  16. GLUCOSE [Concomitant]
     Active Substance: DEXTROSE
     Indication: ACUTE KIDNEY INJURY
     Dosage: 5 AMPULE
     Dates: start: 20200813
  17. INSULIN [Concomitant]
     Active Substance: INSULIN NOS
     Indication: ACUTE KIDNEY INJURY
     Dates: start: 20200813
  18. REMDESIVIR. [Suspect]
     Active Substance: REMDESIVIR
     Indication: COVID-19 PNEUMONIA
     Dosage: MOST RECENT DOSE OF REMDESIVIR PRIOR TO SAE ONSET: 09/AUG/2020 AT 13:05 HR
     Route: 042
     Dates: start: 20200808, end: 20200809
  19. REMDESIVIR. [Suspect]
     Active Substance: REMDESIVIR
     Dosage: MOST RECENT DOSE OF REMDESIVIR PRIOR TO SAE ONSET: 17/AUG/2020 AT 15:07 HR
     Route: 042
     Dates: start: 20200808, end: 20200809
  20. OMEPRAZOLE. [Concomitant]
     Active Substance: OMEPRAZOLE
     Indication: PROPHYLAXIS AGAINST GASTROINTESTINAL ULCER
     Dosage: 20 MG
     Dates: start: 20200806
  21. PLACEBO [Suspect]
     Active Substance: UNSPECIFIED INGREDIENT
     Dosage: UNK
     Route: 042
  22. PLASIL [METOCLOPRAMIDE] [Concomitant]
     Dosage: 5 MG
     Dates: start: 20200806

REACTIONS (5)
  - Sepsis [Recovered/Resolved]
  - Pneumonia [Recovered/Resolved]
  - Systemic candida [Recovered/Resolved]
  - Endotracheal intubation complication [Recovered/Resolved]
  - Tracheobronchitis [Recovered/Resolved]

NARRATIVE: CASE EVENT DATE: 20200810
